FAERS Safety Report 23103213 (Version 1)
Quarter: 2023Q4

REPORT INFORMATION
  Report Type: Spontaneous
  Country: US (occurrence: None)
  Receive Date: 20231018
  Receipt Date: 20231018
  Transmission Date: 20240110
  Serious: Yes (Hospitalization)
  Sender: FDA-Public Use
  Company Number: None

PATIENT
  Sex: Male

DRUGS (2)
  1. REBINYN [Suspect]
     Active Substance: COAGULATION FACTOR IX (RECOMBINANT), GLYCOPEGYLATED
     Indication: Factor IX deficiency
     Dosage: OTHER QUANTITY : 5500 UNITS;?
     Route: 042
     Dates: start: 202308
  2. REBINYN [Suspect]
     Active Substance: COAGULATION FACTOR IX (RECOMBINANT), GLYCOPEGYLATED
     Indication: Factor IX deficiency
     Dosage: OTHER QUANTITY : 5500 UNITS;?FREQUENCY : WEEKLY;?
     Route: 042
     Dates: start: 202308

REACTIONS (2)
  - Muscular weakness [None]
  - Pain [None]
